FAERS Safety Report 20982178 (Version 1)
Quarter: 2022Q2

REPORT INFORMATION
  Report Type: Spontaneous
  Country: US (occurrence: US)
  Receive Date: 20220620
  Receipt Date: 20220620
  Transmission Date: 20220721
  Serious: No
  Sender: FDA-Public Use
  Company Number: US-NOVOPROD-922973

PATIENT
  Sex: Female

DRUGS (3)
  1. WEGOVY [Suspect]
     Active Substance: SEMAGLUTIDE
     Indication: Body mass index abnormal
     Dosage: 0.5 MG
     Route: 058
     Dates: start: 20220108
  2. WEGOVY [Suspect]
     Active Substance: SEMAGLUTIDE
     Indication: Blood cholesterol increased
  3. GLYCOLAX [Concomitant]
     Active Substance: POLYETHYLENE GLYCOL 3350
     Indication: Constipation
     Dosage: UNK
     Route: 065

REACTIONS (2)
  - Constipation [Recovering/Resolving]
  - Fatigue [Not Recovered/Not Resolved]

NARRATIVE: CASE EVENT DATE: 20220301
